FAERS Safety Report 5166022-0 (Version None)
Quarter: 2006Q4

REPORT INFORMATION
  Report Type: 
  Country: None (occurrence: None)
  Receive Date: 20061128
  Receipt Date: 20061121
  Transmission Date: 20070319
  Serious: Yes (Hospitalization, Other)
  Sender: FDA-Public Use
  Company Number: CLOF-10370

PATIENT
  Age: 6 Year
  Sex: Male
  Weight: 15 kg

DRUGS (13)
  1. CLOLAR [Suspect]
     Indication: ACUTE LYMPHOCYTIC LEUKAEMIA
     Dosage: 45 MG QD X 5 IV
     Route: 042
     Dates: start: 20061027, end: 20061031
  2. ZOSYN [Concomitant]
  3. AMBISOME [Concomitant]
  4. BENADRYL [Concomitant]
  5. HYDROCORTISONE [Concomitant]
  6. TYLENOL [Concomitant]
  7. VFEND [Concomitant]
  8. GANCICLOVIR [Concomitant]
  9. VANCOMYCIN [Concomitant]
  10. AZITHROMYCIN [Concomitant]
  11. MERREM [Concomitant]
  12. CLINDAMYCIN [Concomitant]
  13. NEUPOGEN [Concomitant]

REACTIONS (7)
  - ASPERGILLOSIS [None]
  - LUNG NEOPLASM [None]
  - NEUTROPENIA [None]
  - OSTEOMYELITIS [None]
  - PAIN IN EXTREMITY [None]
  - PARAESTHESIA [None]
  - PYREXIA [None]
